FAERS Safety Report 21878080 (Version 2)
Quarter: 2023Q1

REPORT INFORMATION
  Report Type: Report from Study
  Country: US (occurrence: US)
  Receive Date: 20230118
  Receipt Date: 20230310
  Transmission Date: 20230418
  Serious: Yes (Other)
  Sender: FDA-Public Use
  Company Number: US-UCBSA-2023001798

PATIENT
  Age: 4 Year
  Sex: Male
  Weight: 17.7 kg

DRUGS (5)
  1. FINTEPLA [Suspect]
     Active Substance: FENFLURAMINE
     Indication: Product used for unknown indication
     Dosage: 2.7 MILLILITER, 2X/DAY (BID)
     Dates: start: 20210118
  2. FINTEPLA [Suspect]
     Active Substance: FENFLURAMINE
     Dosage: 10.47 MILLIGRAM/KILOGRAM, ONCE DAILY (QD),11.7MG
     Dates: start: 202104
  3. FINTEPLA [Suspect]
     Active Substance: FENFLURAMINE
     Dosage: 1.8 MILLIGRAM, 2X/DAY (BID)
     Dates: start: 20220409
  4. FINTEPLA [Suspect]
     Active Substance: FENFLURAMINE
     Dosage: 1.3 MILLILITER, 2X/DAY (BID)
  5. FINTEPLA [Suspect]
     Active Substance: FENFLURAMINE
     Dosage: 11.88 MILLIGRAM, ONCE DAILY (QD)
     Dates: start: 202012

REACTIONS (2)
  - Pulmonary arterial pressure increased [Unknown]
  - Echocardiogram abnormal [Not Recovered/Not Resolved]

NARRATIVE: CASE EVENT DATE: 20221227
